FAERS Safety Report 5796862-6 (Version None)
Quarter: 2008Q2

REPORT INFORMATION
  Report Type: 
  Country: None (occurrence: None)
  Receive Date: 20080627
  Receipt Date: 20080611
  Transmission Date: 20081010
  Serious: Yes (Death, Hospitalization)
  Sender: FDA-Public Use
  Company Number: 3353GS

PATIENT
  Sex: Male
  Weight: 88 kg

DRUGS (7)
  1. COLGATE [Suspect]
     Indication: GINGIVITIS
     Dosage: NI/BID/ORAL
     Route: 048
  2. SIMVASTATIN [Concomitant]
  3. TRITACE [Concomitant]
  4. RANI II [Concomitant]
  5. ATENOLOL [Concomitant]
  6. ASTRIC [Concomitant]
  7. PLAVIX [Concomitant]

REACTIONS (3)
  - JOINT SWELLING [None]
  - OEDEMA PERIPHERAL [None]
  - PULMONARY EMBOLISM [None]
